FAERS Safety Report 15880506 (Version 2)
Quarter: 2020Q1

REPORT INFORMATION
  Report Type: Spontaneous
  Country: AT (occurrence: AT)
  Receive Date: 20190128
  Receipt Date: 20200331
  Transmission Date: 20200409
  Serious: Yes (Other)
  Sender: FDA-Public Use
  Company Number: AT-CELGENEUS-AUT-20190104674

PATIENT
  Age: 67 Year
  Sex: Female

DRUGS (8)
  1. CYTARABINE. [Concomitant]
     Active Substance: CYTARABINE
     Indication: OCULAR LYMPHOMA
     Dosage: 2 G/M2
     Route: 041
  2. RITUXIMAB. [Concomitant]
     Active Substance: RITUXIMAB
     Indication: OCULAR LYMPHOMA
     Dosage: 375 MILLIGRAM/SQ. METER
     Route: 041
  3. RITUXIMAB. [Concomitant]
     Active Substance: RITUXIMAB
     Dosage: .5 MILLIGRAM
     Route: 065
  4. RITUXIMAB. [Concomitant]
     Active Substance: RITUXIMAB
     Dosage: 1400 MILLIGRAM
     Route: 058
  5. POMALIDOMIDE [Suspect]
     Active Substance: POMALIDOMIDE
     Indication: OCULAR LYMPHOMA
     Dosage: 4 MILLIGRAM
     Route: 048
  6. DEXAMETHASONE. [Concomitant]
     Active Substance: DEXAMETHASONE
     Indication: OCULAR LYMPHOMA
     Dosage: 20 MILLIGRAM
     Route: 048
  7. TEMOZOLOMIDE. [Concomitant]
     Active Substance: TEMOZOLOMIDE
     Indication: OCULAR LYMPHOMA
     Dosage: 240 MILLIGRAM
     Route: 058
  8. CYTARABINE. [Concomitant]
     Active Substance: CYTARABINE
     Route: 037

REACTIONS (4)
  - Hypogammaglobulinaemia [Recovered/Resolved]
  - Adrenal insufficiency [Recovered/Resolved]
  - Neurotoxicity [Recovered/Resolved]
  - Pneumonia [Recovered/Resolved]
